FAERS Safety Report 6716843-5 (Version None)
Quarter: 2010Q2

REPORT INFORMATION
  Report Type: 
  Country: None (occurrence: None)
  Receive Date: 20100510
  Receipt Date: 20100430
  Transmission Date: 20101027
  Serious: Yes (Hospitalization)
  Sender: FDA-Public Use
  Company Number: US-RANBAXY-2010US-33529

PATIENT

DRUGS (2)
  1. AMOXICILLIN [Suspect]
     Indication: DRUG USE FOR UNKNOWN INDICATION
     Dosage: 500 MG, UNK
     Route: 048
  2. ADRENALINE [Suspect]
     Indication: ANAPHYLACTIC REACTION
     Dosage: 2 DOSES OF IV EPINEPHRINE, 0.5 MG, 3RD DOSE OF 1 MG UNDILUTED
     Route: 042

REACTIONS (4)
  - ACCIDENTAL OVERDOSE [None]
  - ANAPHYLACTIC REACTION [None]
  - MEDICATION ERROR [None]
  - MYOCARDIAL ISCHAEMIA [None]
